FAERS Safety Report 15493781 (Version 1)
Quarter: 2018Q4

REPORT INFORMATION
  Report Type: Spontaneous
  Country: FR (occurrence: FR)
  Receive Date: 20181012
  Receipt Date: 20181012
  Transmission Date: 20190205
  Serious: Yes (Other)
  Sender: FDA-Public Use
  Company Number: FR-009507513-1810FRA003867

PATIENT
  Age: 47 Year
  Sex: Male
  Weight: 140 kg

DRUGS (2)
  1. INLYTA [Suspect]
     Active Substance: AXITINIB
     Indication: RENAL CANCER METASTATIC
     Dosage: UNK
     Route: 048
     Dates: start: 201709, end: 201809
  2. KEYTRUDA [Suspect]
     Active Substance: PEMBROLIZUMAB
     Indication: RENAL CANCER METASTATIC
     Dosage: 200 MG, Q3W
     Route: 041
     Dates: start: 201705, end: 201809

REACTIONS (1)
  - Eosinophilic colitis [Recovering/Resolving]

NARRATIVE: CASE EVENT DATE: 201809
